FAERS Safety Report 10305902 (Version 1)
Quarter: 2014Q3

REPORT INFORMATION
  Report Type: Spontaneous
  Country: US (occurrence: None)
  Receive Date: 20140714
  Receipt Date: 20140714
  Transmission Date: 20150326
  Serious: Yes (Other)
  Sender: FDA-Public Use
  Company Number: None

PATIENT
  Age: 85 Year
  Sex: Male
  Weight: 65.32 kg

DRUGS (21)
  1. ALENDRONATE [Concomitant]
     Active Substance: ALENDRONATE SODIUM
  2. BEANO [Concomitant]
     Active Substance: ASPERGILLUS NIGER .ALPHA.-GALACTOSIDASE
  3. CALCIUM [Concomitant]
     Active Substance: CALCIUM
  4. CARBONATE [Concomitant]
  5. COQ10 [Concomitant]
     Active Substance: UBIDECARENONE
  6. IPRATROPIUM [Concomitant]
     Active Substance: IPRATROPIUM
  7. POLY-IRON [Concomitant]
  8. CENTRUM [Concomitant]
     Active Substance: VITAMINS
  9. FLUCINIDE [Concomitant]
  10. LATANAPROST [Concomitant]
  11. DONEAPEZIL [Concomitant]
  12. ROPINIROLE. [Concomitant]
     Active Substance: ROPINIROLE
  13. BACLOFIN [Concomitant]
  14. GABAPENTIN. [Concomitant]
     Active Substance: GABAPENTIN
  15. NAMENDA [Concomitant]
     Active Substance: MEMANTINE HYDROCHLORIDE
  16. VITAMIN D [Concomitant]
     Active Substance: CHOLECALCIFEROL
  17. FINASTRIDE [Concomitant]
  18. IMBRUVICA [Suspect]
     Active Substance: IBRUTINIB
     Indication: WALDENSTROM^S MACROGLOBULINAEMIA
     Route: 048
  19. ASPIRIN. [Concomitant]
     Active Substance: ASPIRIN
  20. IMODIUM [Concomitant]
     Active Substance: LOPERAMIDE HYDROCHLORIDE
  21. PROCRIT [Concomitant]
     Active Substance: ERYTHROPOIETIN

REACTIONS (3)
  - Macular degeneration [None]
  - Eye haemorrhage [None]
  - Retinal detachment [None]

NARRATIVE: CASE EVENT DATE: 20140709
